FAERS Safety Report 24342749 (Version 2)
Quarter: 2024Q3

REPORT INFORMATION
  Report Type: Spontaneous
  Country: NZ (occurrence: NZ)
  Receive Date: 20240920
  Receipt Date: 20240924
  Transmission Date: 20241017
  Serious: Yes (Death)
  Sender: MYLAN
  Company Number: NZ-MYLANLABS-2024M1085664

PATIENT
  Sex: Male

DRUGS (12)
  1. CLOZARIL [Suspect]
     Active Substance: CLOZAPINE
     Indication: Schizophrenia
     Dosage: UNK
     Route: 048
     Dates: start: 20210222, end: 20240831
  2. MIDAZOLAM [Concomitant]
     Active Substance: MIDAZOLAM
     Dosage: UNK
     Route: 065
  3. QUETIAPINE [Concomitant]
     Active Substance: QUETIAPINE
     Dosage: UNK
     Route: 065
  4. SCOPOLAMINE [Concomitant]
     Active Substance: SCOPOLAMINE
     Dosage: UNK
     Route: 065
  5. Micolette [Concomitant]
     Dosage: UNK
     Route: 065
  6. MORPHINE [Concomitant]
     Active Substance: MORPHINE
     Dosage: UNK
     Route: 065
  7. ALBUTEROL [Concomitant]
     Active Substance: ALBUTEROL
     Dosage: UNK
     Route: 065
  8. ACETAMINOPHEN [Concomitant]
     Active Substance: ACETAMINOPHEN
     Dosage: UNK
     Route: 065
  9. ATROVENT [Concomitant]
     Active Substance: IPRATROPIUM BROMIDE
     Dosage: UNK
     Route: 065
  10. OMEPRAZOLE [Concomitant]
     Active Substance: OMEPRAZOLE
     Dosage: UNK
     Route: 065
  11. ZIPRASIDONE [Concomitant]
     Active Substance: ZIPRASIDONE
     Dosage: UNK
     Route: 065
  12. CLONAZEPAM [Concomitant]
     Active Substance: CLONAZEPAM
     Dosage: UNK
     Route: 065

REACTIONS (1)
  - Pneumonia aspiration [Fatal]
